FAERS Safety Report 23365660 (Version 7)
Quarter: 2024Q1

REPORT INFORMATION
  Report Type: Spontaneous
  Country: US (occurrence: US)
  Receive Date: 20240104
  Receipt Date: 20240328
  Transmission Date: 20240410
  Serious: No
  Sender: FDA-Public Use
  Company Number: US-PFIZER INC-PV202300202975

PATIENT
  Age: 17 Year
  Sex: Male
  Weight: 65.77 kg

DRUGS (2)
  1. GENOTROPIN [Suspect]
     Active Substance: SOMATROPIN
     Indication: Pituitary tumour
     Dosage: 2 MG, 1X/DAY (NIGHTLY)
     Dates: start: 202311
  2. GENOTROPIN [Suspect]
     Active Substance: SOMATROPIN
     Indication: Growth hormone deficiency
     Dosage: 2.4 MG, 1X/DAY (NIGHTLY)
     Route: 058
     Dates: start: 20231207

REACTIONS (7)
  - Off label use [Unknown]
  - Drug dose omission by device [Unknown]
  - Wrong technique in device usage process [Unknown]
  - Needle issue [Unknown]
  - Device leakage [Unknown]
  - Device information output issue [Unknown]
  - Device delivery system issue [Unknown]

NARRATIVE: CASE EVENT DATE: 20230101
